FAERS Safety Report 16568131 (Version 1)
Quarter: 2019Q3

REPORT INFORMATION
  Report Type: Spontaneous
  Country: US (occurrence: US)
  Receive Date: 20190712
  Receipt Date: 20190712
  Transmission Date: 20191004
  Serious: Yes (Other)
  Sender: FDA-Public Use
  Company Number: US-FRESENIUS KABI-FK201907615

PATIENT
  Age: 32 Year
  Sex: Female

DRUGS (3)
  1. LEUPRORELIN ACETATE [Suspect]
     Active Substance: LEUPROLIDE ACETATE
     Indication: HORMONE THERAPY
     Dosage: UNKNOWN
     Route: 065
  2. HUMAN MENOPAUSAL GONADOTROPHIN [Suspect]
     Active Substance: GONADOTROPHIN, CHORIONIC
     Indication: HORMONE THERAPY
     Dosage: UNKNOWN
     Route: 065
  3. CHORIONIC GONADOTROPIN [Suspect]
     Active Substance: CHORIOGONADOTROPIN ALFA
     Indication: HORMONE THERAPY
     Dosage: UNKNOWN
     Route: 065

REACTIONS (3)
  - Intracranial pressure increased [Recovered/Resolved]
  - Cerebrospinal fluid leakage [Recovered/Resolved]
  - Flap necrosis [Recovered/Resolved]
